FAERS Safety Report 7912131-X (Version None)
Quarter: 2011Q4

REPORT INFORMATION
  Report Type: 
  Country: None (occurrence: None)
  Receive Date: 20111114
  Receipt Date: 20111108
  Transmission Date: 20120403
  Serious: Yes (Hospitalization, Other)
  Sender: FDA-Public Use
  Company Number: US-ALEXION-A201101646

PATIENT
  Sex: Female
  Weight: 106 kg

DRUGS (13)
  1. MECLIZINE [Concomitant]
     Dosage: 25 MG, UNK
  2. CENTRUM [Concomitant]
  3. NEXIUM [Concomitant]
     Dosage: 40 MG, QD
  4. CARDIZEM [Concomitant]
     Dosage: 360 MG, QD
  5. DICYCLOMINE [Concomitant]
     Dosage: 10 MG, BID
     Route: 048
  6. TYLENOL EXTRA STRENGTH [Concomitant]
  7. ADVAIR DISKUS 100/50 [Concomitant]
     Dosage: UNK
  8. CARAFATE [Concomitant]
     Dosage: 1 G, BID
  9. CELEXA [Concomitant]
     Dosage: 40 MG, QD
  10. ARICEPT [Concomitant]
     Dosage: 5 MG, QD
  11. SOLIRIS [Suspect]
     Indication: HAEMOLYTIC URAEMIC SYNDROME
     Dosage: UNK
     Route: 042
  12. NAFTIN [Concomitant]
     Indication: NAIL DISORDER
     Dosage: UNK
  13. ASPIRIN [Concomitant]
     Dosage: 81 MG, QD

REACTIONS (5)
  - SEPSIS [None]
  - INTESTINAL OBSTRUCTION [None]
  - PNEUMONIA [None]
  - HEPATITIS C [None]
  - CHRONIC RESPIRATORY FAILURE [None]
